FAERS Safety Report 18587400 (Version 1)
Quarter: 2020Q4

REPORT INFORMATION
  Report Type: Spontaneous
  Country: US (occurrence: US)
  Receive Date: 20201203
  Receipt Date: 20201203
  Transmission Date: 20210114
  Serious: Yes (Other)
  Sender: FDA-Public Use
  Company Number: None

PATIENT
  Age: 43 Year
  Sex: Female

DRUGS (1)
  1. COPAXONE [Suspect]
     Active Substance: GLATIRAMER ACETATE
     Dosage: OTHER?
     Route: 004
     Dates: start: 201512, end: 202011

REACTIONS (2)
  - Injection site reaction [None]
  - Injection site discolouration [None]

NARRATIVE: CASE EVENT DATE: 20201203
